FAERS Safety Report 4389552-8 (Version None)
Quarter: 2004Q2

REPORT INFORMATION
  Report Type: 
  Country: None (occurrence: None)
  Receive Date: 20040629
  Receipt Date: 20040409
  Transmission Date: 20050107
  Serious: Yes (Disabling)
  Sender: FDA-Public Use
  Company Number: US-JNJFOC-20040402299

PATIENT
  Age: 52 Year
  Sex: Female
  Weight: 40.8237 kg

DRUGS (6)
  1. DURAGESIC [Suspect]
     Indication: PAIN
     Dosage: SEE IMAGE
     Route: 062
     Dates: start: 20000101
  2. DURAGESIC [Suspect]
     Dosage: SEE IMAGE
     Dates: start: 20000101
  3. DURAGESIC [Suspect]
  4. DURAGESIC [Suspect]
  5. DURAGESIC [Suspect]
  6. DURAGESIC [Suspect]

REACTIONS (10)
  - DRUG WITHDRAWAL SYNDROME [None]
  - GAIT DISTURBANCE [None]
  - HYPERHIDROSIS [None]
  - INSOMNIA [None]
  - OEDEMA PERIPHERAL [None]
  - PRURITUS [None]
  - RHINORRHOEA [None]
  - SKIN DISCOLOURATION [None]
  - SKIN DISORDER [None]
  - THERAPEUTIC RESPONSE DECREASED [None]
